FAERS Safety Report 15923096 (Version 2)
Quarter: 2019Q1

REPORT INFORMATION
  Report Type: Spontaneous
  Country: US (occurrence: US)
  Receive Date: 20190206
  Receipt Date: 20190314
  Transmission Date: 20190417
  Serious: No
  Sender: FDA-Public Use
  Company Number: US-GLENMARK PHARMACEUTICALS-2018GMK038743

PATIENT

DRUGS (4)
  1. OLMESARTAN MEDOXOMIL TABLETS [Suspect]
     Active Substance: OLMESARTAN MEDOXOMIL
     Indication: HYPERTENSION
     Dosage: 20 MG, OD
     Route: 048
     Dates: start: 2018
  2. HYDROCHLOROTHIAZIDE. [Concomitant]
     Active Substance: HYDROCHLOROTHIAZIDE
     Indication: SWELLING
     Dosage: 25 MG, QD
     Route: 048
  3. PLAQUENIL                          /00072602/ [Concomitant]
     Active Substance: HYDROXYCHLOROQUINE DIPHOSPHATE
     Indication: RHEUMATOID ARTHRITIS
     Dosage: 400 MG, QD
     Route: 048
  4. SPIRIVA [Concomitant]
     Active Substance: TIOTROPIUM BROMIDE MONOHYDRATE
     Indication: CHRONIC OBSTRUCTIVE PULMONARY DISEASE
     Dosage: 18 MCG, QD

REACTIONS (4)
  - Product odour abnormal [Unknown]
  - Poor quality product administered [Unknown]
  - No adverse event [Unknown]
  - Product taste abnormal [Unknown]

NARRATIVE: CASE EVENT DATE: 2018
